FAERS Safety Report 5133341-3 (Version None)
Quarter: 2006Q4

REPORT INFORMATION
  Report Type: 
  Country: None (occurrence: None)
  Receive Date: 20060831
  Receipt Date: 20060609
  Transmission Date: 20070319
  Serious: No
  Sender: FDA-Public Use
  Company Number: 2006-BP-06561BP

PATIENT
  Sex: Female

DRUGS (10)
  1. SPIRIVA [Suspect]
     Indication: DYSPNOEA
     Dosage: 18 MCG (18 MCG,1 IN 1 D),IH
     Dates: start: 20060527
  2. LUMIGAN [Concomitant]
  3. LANOXIN [Concomitant]
  4. LIPITOR [Concomitant]
  5. PROTONIX [Concomitant]
  6. CLONOPIN [Concomitant]
  7. TOPAMAX [Concomitant]
  8. ACYCELOVIR [Concomitant]
  9. CELEBREX [Concomitant]
  10. VALIUM [Concomitant]

REACTIONS (2)
  - EYE DISORDER [None]
  - VISION BLURRED [None]
